FAERS Safety Report 14565882 (Version 1)
Quarter: 2018Q1

REPORT INFORMATION
  Report Type: Spontaneous
  Country: US (occurrence: US)
  Receive Date: 20180223
  Receipt Date: 20180223
  Transmission Date: 20180509
  Serious: No
  Sender: FDA-Public Use
  Company Number: US-009507513-1802USA010732

PATIENT
  Age: 94 Year
  Sex: Male

DRUGS (1)
  1. KEYTRUDA [Suspect]
     Active Substance: PEMBROLIZUMAB
     Indication: LUNG CARCINOMA CELL TYPE UNSPECIFIED STAGE IV
     Dosage: 200 ML
     Route: 042
     Dates: start: 201706

REACTIONS (3)
  - Skin lesion [Unknown]
  - Drug eruption [Unknown]
  - Fatigue [Unknown]
